FAERS Safety Report 5812459-3 (Version None)
Quarter: 2008Q3

REPORT INFORMATION
  Report Type: 
  Country: None (occurrence: None)
  Receive Date: 20080715
  Receipt Date: 20080715
  Transmission Date: 20090109
  Serious: Yes (Other)
  Sender: FDA-Public Use
  Company Number: None

PATIENT
  Age: 10 Year
  Sex: Male
  Weight: 29.4838 kg

DRUGS (3)
  1. SINGULAIR [Suspect]
     Indication: AUTOIMMUNE DISORDER
     Dosage: 1 TABLET 1X PO
     Route: 048
     Dates: start: 20080110, end: 20080708
  2. SINGULAIR [Suspect]
     Indication: INFLAMMATION
     Dosage: 1 TABLET 1X PO
     Route: 048
     Dates: start: 20080110, end: 20080708
  3. SINGULAIR [Suspect]
     Indication: MULTIPLE ALLERGIES
     Dosage: 1 TABLET 1X PO
     Route: 048
     Dates: start: 20080110, end: 20080708

REACTIONS (5)
  - ABNORMAL BEHAVIOUR [None]
  - CRYING [None]
  - HOMICIDAL IDEATION [None]
  - MOOD ALTERED [None]
  - NEGATIVISM [None]
